FAERS Safety Report 10933727 (Version 3)
Quarter: 2015Q3

REPORT INFORMATION
  Report Type: Report from Study
  Country: BR (occurrence: BR)
  Receive Date: 20150320
  Receipt Date: 20150703
  Transmission Date: 20151125
  Serious: Yes (Death, Hospitalization, Other)
  Sender: FDA-Public Use
  Company Number: BR-ROCHE-1469628

PATIENT
  Sex: Male
  Weight: 110 kg

DRUGS (4)
  1. OMEPRAZOLE. [Concomitant]
     Active Substance: OMEPRAZOLE
  2. AVASTIN [Suspect]
     Active Substance: BEVACIZUMAB
     Indication: COLORECTAL CANCER
     Route: 065
     Dates: start: 20140601
  3. AVASTIN [Suspect]
     Active Substance: BEVACIZUMAB
     Route: 065
     Dates: start: 20141031
  4. CAPTOPRIL. [Concomitant]
     Active Substance: CAPTOPRIL

REACTIONS (11)
  - Spinal cord compression [Unknown]
  - Hypersensitivity [Unknown]
  - Abasia [Unknown]
  - Nodule [Unknown]
  - Pain in extremity [Recovering/Resolving]
  - Pneumonia [Unknown]
  - Infection [Fatal]
  - Weight fluctuation [Unknown]
  - Glossodynia [Unknown]
  - Metastases to spine [Unknown]
  - Hypertension [Not Recovered/Not Resolved]
